FAERS Safety Report 19712879 (Version 1)
Quarter: 2021Q3

REPORT INFORMATION
  Report Type: Spontaneous
  Country: US (occurrence: US)
  Receive Date: 20210816
  Receipt Date: 20210816
  Transmission Date: 20211014
  Serious: Yes (Death)
  Sender: FDA-Public Use
  Company Number: US-SYNEX-T202103598

PATIENT
  Age: 65 Year
  Sex: Male

DRUGS (2)
  1. INOMAX [Suspect]
     Active Substance: NITRIC OXIDE
     Indication: HYPOXIA
     Dosage: 40 PPM, VIA INHALATION
     Route: 055
     Dates: start: 20210723, end: 20210806
  2. INOMAX [Suspect]
     Active Substance: NITRIC OXIDE
     Indication: COVID-19

REACTIONS (3)
  - Product use in unapproved indication [Unknown]
  - Product use issue [Unknown]
  - COVID-19 [Fatal]

NARRATIVE: CASE EVENT DATE: 20210723
